FAERS Safety Report 6705994-7 (Version None)
Quarter: 2010Q2

REPORT INFORMATION
  Report Type: 
  Country: None (occurrence: None)
  Receive Date: 20100430
  Receipt Date: 20100430
  Transmission Date: 20101027
  Serious: Yes (Hospitalization)
  Sender: FDA-Public Use
  Company Number: None

PATIENT
  Age: 27 Year
  Sex: Female
  Weight: 53.0709 kg

DRUGS (1)
  1. OCELLA [Suspect]
     Indication: CONTRACEPTION
     Dates: start: 20100301, end: 20100401

REACTIONS (13)
  - ABDOMINAL PAIN [None]
  - BACK PAIN [None]
  - CHILLS [None]
  - DEPRESSION [None]
  - DIZZINESS [None]
  - DYSURIA [None]
  - HEAD INJURY [None]
  - INSOMNIA [None]
  - IRRITABILITY [None]
  - KIDNEY INFECTION [None]
  - LOSS OF CONSCIOUSNESS [None]
  - NAUSEA [None]
  - STAPHYLOCOCCAL INFECTION [None]
